FAERS Safety Report 9278500 (Version 3)
Quarter: 2014Q2

REPORT INFORMATION
  Report Type: Spontaneous
  Country: FR (occurrence: FR)
  Receive Date: 20130508
  Receipt Date: 20140616
  Transmission Date: 20141212
  Serious: Yes (Hospitalization)
  Sender: FDA-Public Use
  Company Number: FR-JNJFOC-20130413885

PATIENT
  Age: 13 Year
  Sex: Male

DRUGS (8)
  1. RISPERDAL [Suspect]
     Indication: ACCIDENTAL EXPOSURE TO PRODUCT
     Route: 048
  2. RISPERDAL [Suspect]
     Indication: ACCIDENTAL EXPOSURE TO PRODUCT
     Route: 048
     Dates: start: 20121217, end: 20121217
  3. RISPERDAL [Suspect]
     Indication: AUTISM
     Route: 048
  4. RISPERDAL [Suspect]
     Indication: AUTISM
     Route: 048
     Dates: start: 20121217, end: 20121217
  5. ATARAX [Suspect]
     Indication: ACCIDENTAL EXPOSURE TO PRODUCT
     Route: 048
     Dates: start: 20121217, end: 20121217
  6. ATARAX [Suspect]
     Indication: ACCIDENTAL EXPOSURE TO PRODUCT
     Route: 048
  7. ATARAX [Suspect]
     Indication: AUTISM
     Route: 048
     Dates: start: 20121217, end: 20121217
  8. ATARAX [Suspect]
     Indication: AUTISM
     Route: 048

REACTIONS (4)
  - Somnolence [Recovered/Resolved]
  - Tachycardia [Recovered/Resolved]
  - Incorrect dose administered [Unknown]
  - Off label use [Unknown]
